FAERS Safety Report 8495748 (Version 2)
Quarter: 2012Q4

REPORT INFORMATION
  Report Type: Report from Study
  Country: US (occurrence: None)
  Receive Date: 20120329
  Receipt Date: 20120920
  Transmission Date: 20130627
  Serious: Yes (Hospitalization)
  Sender: FDA-Public Use
  Company Number: 2012SGN00111

PATIENT
  Age: 40 Year
  Sex: Female
  Weight: 93.4 kg

DRUGS (5)
  1. BRENTUXIMAB VEDOTIN [Suspect]
     Indication: ANAPLASTIC LARGE-CELL LYMPHOMA
     Dosage: Q21D
     Route: 042
     Dates: start: 20111223, end: 20120223
  2. CYCLOPHOSPHAMIDE [Suspect]
     Indication: LYMPHOMA
     Dosage: Q21D
     Route: 042
     Dates: start: 20111223, end: 20120223
  3. DOXORUBICIN HYDROCHLORIDE [Suspect]
     Indication: LYMPHOMA
     Dosage: Q21D
     Route: 042
     Dates: start: 20111223, end: 20120223
  4. PREDNISONE [Suspect]
     Indication: LYMPHOMA
     Dosage: Q21D
     Route: 048
     Dates: start: 20111223, end: 20120223
  5. TYLENOL WITH CODEINE [Concomitant]

REACTIONS (2)
  - Febrile neutropenia [None]
  - Pancytopenia [None]
